FAERS Safety Report 7632575-3 (Version None)
Quarter: 2011Q3

REPORT INFORMATION
  Report Type: 
  Country: None (occurrence: None)
  Receive Date: 20110725
  Receipt Date: 20101018
  Transmission Date: 20111222
  Serious: No
  Sender: FDA-Public Use
  Company Number: US-BRISTOL-MYERS SQUIBB COMPANY-15338817

PATIENT
  Age: 39 Year
  Sex: Female
  Weight: 77 kg

DRUGS (5)
  1. WARFARIN SODIUM [Suspect]
  2. COUMADIN [Suspect]
  3. LIPITOR [Concomitant]
  4. TYLENOL-500 [Concomitant]
  5. AMBIEN [Concomitant]

REACTIONS (1)
  - ALOPECIA [None]
